FAERS Safety Report 13142124 (Version 1)
Quarter: 2017Q1

REPORT INFORMATION
  Report Type: Spontaneous
  Country: FR (occurrence: FR)
  Receive Date: 20170124
  Receipt Date: 20170124
  Transmission Date: 20170428
  Serious: Yes (Other)
  Sender: FDA-Public Use
  Company Number: FR-SA-2016SA233702

PATIENT
  Age: 51 Year
  Sex: Female

DRUGS (3)
  1. AVONEX [Concomitant]
     Active Substance: INTERFERON BETA-1A
  2. COPAXONE [Concomitant]
     Active Substance: GLATIRAMER ACETATE
  3. AUBAGIO [Suspect]
     Active Substance: TERIFLUNOMIDE
     Route: 048
     Dates: start: 20160220

REACTIONS (1)
  - Thyroid disorder [Not Recovered/Not Resolved]

NARRATIVE: CASE EVENT DATE: 20161123
